FAERS Safety Report 8133578-5 (Version None)
Quarter: 2012Q1

REPORT INFORMATION
  Report Type: 
  Country: None (occurrence: None)
  Receive Date: 20120213
  Receipt Date: 20120130
  Transmission Date: 20120608
  Serious: Yes (Hospitalization, Other)
  Sender: FDA-Public Use
  Company Number: FR-ELI_LILLY_AND_COMPANY-FR201202000875

PATIENT
  Age: 53 Year
  Sex: Female

DRUGS (5)
  1. CARBOPLATIN [Concomitant]
     Indication: BREAST CANCER
  2. FLUOXETINE [Suspect]
     Indication: DEPRESSION
  3. HYDROCORTISONE [Concomitant]
     Indication: BREAST OEDEMA
  4. BEVACIZUMAB [Concomitant]
     Indication: BREAST CANCER
  5. CANNABIS [Concomitant]

REACTIONS (2)
  - VOMITING [None]
  - CEREBROVASCULAR SPASM [None]
